FAERS Safety Report 8810657 (Version 1)
Quarter: 2012Q4

REPORT INFORMATION
  Report Type: 
  Country: IT (occurrence: IT)
  Receive Date: 20120927
  Receipt Date: 20120927
  Transmission Date: 20130627
  Serious: Yes (Hospitalization)
  Sender: FDA-Public Use
  Company Number: IT-009507513-1202ITA00044

PATIENT
  Age: 86 Year
  Sex: Male

DRUGS (6)
  1. SINVACOR [Suspect]
     Indication: ISCHAEMIC CARDIOMYOPATHY
     Dosage: 20 mg, qd
     Route: 048
     Dates: start: 201201, end: 20120126
  2. TICLOPIDINE HYDROCHLORIDE [Concomitant]
     Dosage: 500 mg, qd
     Route: 048
  3. SELOKEN [Concomitant]
     Dosage: 200 mg, qd
     Route: 048
  4. TRIATEC (RAMIPRIL) [Concomitant]
     Dosage: 2.5 mg, qd
     Route: 048
  5. TAVOR (LORAZEPAM) [Concomitant]
     Dosage: 1 mg, qd
     Route: 048
  6. UNSPECIFIED INGREDIENT [Concomitant]
     Indication: HYPERCHOLESTEROLAEMIA

REACTIONS (2)
  - Blood creatine phosphokinase increased [Recovered/Resolved]
  - Hypertransaminasaemia [Recovered/Resolved]
